FAERS Safety Report 24714099 (Version 1)
Quarter: 2024Q4

REPORT INFORMATION
  Report Type: Spontaneous
  Country: US (occurrence: US)
  Receive Date: 20241209
  Receipt Date: 20241209
  Transmission Date: 20250115
  Serious: No
  Sender: REGENERON
  Company Number: US-REGENERON PHARMACEUTICALS, INC.-2024-118880

PATIENT
  Sex: Male

DRUGS (11)
  1. EYLEA [Suspect]
     Active Substance: AFLIBERCEPT
     Indication: Diabetic retinopathy
     Dosage: 2 MG, INTO LEFT EYE (PATIENT ON TREATMENT FOR BOTH EYES) EVERY 6 TO 8 WEEKS, FORMULATION: UNKNOWN
     Dates: start: 202111, end: 202111
  2. EYLEA [Suspect]
     Active Substance: AFLIBERCEPT
     Indication: Diabetic retinal oedema
     Dosage: 2 MG, INTO RIGHT EYE, EVERY 12 WEEKS, FORMULATION: UNKNOWN
     Dates: start: 202111
  3. EYLEA [Suspect]
     Active Substance: AFLIBERCEPT
     Dosage: 2 MG, INTO LEFT EYE, EVERY 6 TO 8 WEEKS, FORMULATION: UNKNOWN
     Dates: start: 2022
  4. EYLEA [Suspect]
     Active Substance: AFLIBERCEPT
     Dosage: 2 MG, INTO LEFT EYE, EVERY 6 TO 8 WEEKS, FORMULATION: UNKNOWN, MID MARC-2024
     Dates: start: 202403, end: 202403
  5. EYLEA [Suspect]
     Active Substance: AFLIBERCEPT
     Dosage: 2 MG, INTO LEFT EYE, SPREAD OUT TO 3 TO 4 MONTHS, FORMULATION: UNKNOWN
  6. METFORMIN [Concomitant]
     Active Substance: METFORMIN HYDROCHLORIDE
     Indication: Diabetes mellitus
     Dosage: 1000 MG, TWICE A DAY
  7. GLIMEPIRIDE [Concomitant]
     Active Substance: GLIMEPIRIDE
     Indication: Diabetes mellitus
     Dosage: 4 MG, TWICE A DAY
  8. JARDIANCE [Concomitant]
     Active Substance: EMPAGLIFLOZIN
     Indication: Diabetes mellitus
     Dosage: 25 MG, ONCE A DAY
  9. TRULICITY [Concomitant]
     Active Substance: DULAGLUTIDE
     Indication: Diabetes mellitus
     Dosage: 3 MG, ONCE A WEEK
  10. SERTRALINE [Concomitant]
     Active Substance: SERTRALINE HYDROCHLORIDE
     Indication: Product used for unknown indication
     Dosage: 500 MG, ONCE A DAY
  11. PRAVASTATIN [Concomitant]
     Active Substance: PRAVASTATIN
     Indication: Product used for unknown indication
     Dosage: UNK, ONCE A DAY

REACTIONS (1)
  - Eye haemorrhage [Unknown]
